FAERS Safety Report 9859616 (Version 1)
Quarter: 2014Q1

REPORT INFORMATION
  Report Type: Spontaneous
  Country: GB (occurrence: GB)
  Receive Date: 20140131
  Receipt Date: 20140131
  Transmission Date: 20141002
  Serious: Yes (Other)
  Sender: FDA-Public Use
  Company Number: PHHY2014GB010981

PATIENT
  Age: 25 Year
  Sex: Female

DRUGS (3)
  1. CICLOSPORIN [Suspect]
     Indication: IMMUNOSUPPRESSION
     Dosage: 100 MG, DAILY
  2. PREDNISOLONE [Suspect]
     Indication: IMMUNOSUPPRESSION
     Dosage: 12.5 MG, DAILY
  3. AZATHIOPRINE [Suspect]
     Indication: IMMUNOSUPPRESSION
     Dosage: 75 MG, DAILY

REACTIONS (5)
  - Foetal death [Unknown]
  - Placental disorder [Unknown]
  - Foetal growth restriction [Unknown]
  - Vasoconstriction [Unknown]
  - Exposure during pregnancy [Unknown]
